FAERS Safety Report 7858145-X (Version None)
Quarter: 2011Q4

REPORT INFORMATION
  Report Type: 
  Country: None (occurrence: None)
  Receive Date: 20111027
  Receipt Date: 20111017
  Transmission Date: 20120403
  Serious: Yes (Other)
  Sender: FDA-Public Use
  Company Number: CA-SP-2011-10043

PATIENT
  Age: 64 Year
  Sex: Male

DRUGS (1)
  1. TICE BCG [Suspect]
     Indication: BLADDER TRANSITIONAL CELL CARCINOMA STAGE I
     Dosage: NOT REPORTED
     Route: 043

REACTIONS (6)
  - CHILLS [None]
  - BOVINE TUBERCULOSIS [None]
  - MASS [None]
  - PELVIC ABSCESS [None]
  - PYREXIA [None]
  - SCROTAL PAIN [None]
